FAERS Safety Report 16917024 (Version 1)
Quarter: 2019Q4

REPORT INFORMATION
  Report Type: Spontaneous
  Country: JP (occurrence: JP)
  Receive Date: 20191015
  Receipt Date: 20191015
  Transmission Date: 20200122
  Serious: Yes (Other)
  Sender: FDA-Public Use
  Company Number: JP-TEVA-2019-JP-1121764

PATIENT
  Age: 57 Year
  Sex: Male
  Weight: 60.1 kg

DRUGS (2)
  1. CISPLATIN. [Suspect]
     Active Substance: CISPLATIN
     Indication: OESOPHAGEAL ADENOCARCINOMA STAGE III
     Dosage: INFUSED WITHIN 30 MINUTES ON DAY 1; TWO CYCLES OF CHEMOTHERAPY COMPLETED?START PERIOD: 16 (DAYS)
     Route: 041
  2. 5-FLUOROURACIL [Suspect]
     Active Substance: FLUOROURACIL
     Indication: OESOPHAGEAL ADENOCARCINOMA STAGE III
     Dosage: INFUSED CONTINUOUSLY ON DAYS 1-5; TWO CYCLES OF CHEMOTHERAPY WERE CONDUCTED?START PERIOD: 16 (DAYS)
     Route: 041

REACTIONS (4)
  - Thrombocytopenia [Unknown]
  - Anaemia [Unknown]
  - Leukopenia [Unknown]
  - Decreased appetite [Unknown]
